FAERS Safety Report 25898084 (Version 2)
Quarter: 2025Q4

REPORT INFORMATION
  Report Type: Spontaneous
  Country: US (occurrence: US)
  Receive Date: 20251008
  Receipt Date: 20251204
  Transmission Date: 20260117
  Serious: No
  Sender: Haleon PLC
  Company Number: US-HALEON-2266878

PATIENT
  Age: 76 Year
  Sex: Female

DRUGS (1)
  1. ADVIL [Suspect]
     Active Substance: IBUPROFEN
     Indication: Arthritis

REACTIONS (3)
  - Glossodynia [Recovered/Resolved]
  - Abdominal pain upper [Unknown]
  - Product taste abnormal [Unknown]
